FAERS Safety Report 7470667-2 (Version None)
Quarter: 2011Q2

REPORT INFORMATION
  Report Type: 
  Country: None (occurrence: None)
  Receive Date: 20110510
  Receipt Date: 20110426
  Transmission Date: 20111010
  Serious: No
  Sender: FDA-Public Use
  Company Number: US-B.I. PHARMACEUTICALS,INC./RIDGEFIELD-2011-BP-11781BP

PATIENT
  Age: 76 Year
  Sex: Female

DRUGS (4)
  1. METOPROLOL SUCCINATE [Concomitant]
  2. PRADAXA [Suspect]
     Indication: ATRIAL FIBRILLATION
     Dosage: 300 MG
     Route: 048
     Dates: start: 20110301
  3. QUINAPRIL [Concomitant]
  4. PANTOPRAZOLE [Concomitant]

REACTIONS (2)
  - SWELLING [None]
  - JOINT SWELLING [None]
